FAERS Safety Report 10667674 (Version 1)
Quarter: 2014Q4

REPORT INFORMATION
  Report Type: Spontaneous
  Country: DE (occurrence: None)
  Receive Date: 20141218
  Receipt Date: 20141218
  Transmission Date: 20150529
  Serious: Yes (Hospitalization, Other)
  Sender: FDA-Public Use
  Company Number: DE-ZYDUS-006042

PATIENT
  Age: 45 Year
  Sex: Male

DRUGS (2)
  1. QUININE [Suspect]
     Active Substance: QUININE
     Indication: CEREBRAL MALARIA
  2. CLINDAMYCIN [Suspect]
     Active Substance: CLINDAMYCIN\CLINDAMYCIN PHOSPHATE
     Indication: CEREBRAL MALARIA
     Route: 048

REACTIONS (3)
  - Eosinophilic pneumonia [None]
  - Respiratory failure [None]
  - Pneumothorax spontaneous [None]
